FAERS Safety Report 9613110 (Version 1)
Quarter: 2013Q4

REPORT INFORMATION
  Report Type: Spontaneous
  Country: US (occurrence: US)
  Receive Date: 20131010
  Receipt Date: 20131010
  Transmission Date: 20140711
  Serious: Yes (Other)
  Sender: FDA-Public Use
  Company Number: US-JNJFOC-20131003259

PATIENT
  Age: 41 Year
  Sex: Female
  Weight: 108.86 kg

DRUGS (10)
  1. INVOKANA [Suspect]
     Indication: TYPE 2 DIABETES MELLITUS
     Route: 048
     Dates: start: 201309
  2. METFORMIN ER [Concomitant]
     Indication: TYPE 2 DIABETES MELLITUS
     Route: 048
  3. LISINOPRIL HCTZ [Concomitant]
     Indication: HYPERTENSION
     Route: 048
  4. CLARINEX [Concomitant]
     Indication: MULTIPLE ALLERGIES
     Route: 048
     Dates: start: 2012
  5. SINGULAIR [Concomitant]
     Indication: ASTHMA
     Route: 048
     Dates: start: 2012
  6. SINGULAIR [Concomitant]
     Indication: MULTIPLE ALLERGIES
     Route: 048
     Dates: start: 2012
  7. PROZAC [Concomitant]
     Indication: DEPRESSION
     Route: 048
  8. LIPITOR [Concomitant]
     Indication: BLOOD CHOLESTEROL INCREASED
     Route: 048
     Dates: start: 2013
  9. FISH OIL [Concomitant]
     Indication: BLOOD TRIGLYCERIDES INCREASED
     Route: 048
  10. FISH OIL [Concomitant]
     Indication: BLOOD CHOLESTEROL INCREASED
     Route: 048

REACTIONS (1)
  - Alopecia [Unknown]
